FAERS Safety Report 24133211 (Version 1)
Quarter: 2024Q3

REPORT INFORMATION
  Report Type: Spontaneous
  Country: FR (occurrence: FR)
  Receive Date: 20240724
  Receipt Date: 20240724
  Transmission Date: 20241017
  Serious: Yes (Other)
  Sender: SANOFI AVENTIS
  Company Number: FR-SA-2024SA208929

PATIENT
  Age: 30 Year
  Sex: Male

DRUGS (20)
  1. FLUDARABINE PHOSPHATE [Suspect]
     Active Substance: FLUDARABINE PHOSPHATE
     Indication: Sickle cell disease
     Dosage: 40 MG/M2, QD (AT DAY -8, -7, -6, -5 AND -4)
  2. DEXAMETHASONE [Suspect]
     Active Substance: DEXAMETHASONE
     Indication: Sickle cell disease
     Dosage: 25 MG/M2, QD (AT DAY -61, -60, -59, -58, AND -57)
  3. DEXAMETHASONE [Suspect]
     Active Substance: DEXAMETHASONE
     Dosage: 25 MG/M2, QD (AT DAY -33, -32, -31, -30 AND -29)
  4. CYCLOPHOSPHAMIDE [Suspect]
     Active Substance: CYCLOPHOSPHAMIDE
     Indication: Sickle cell disease
     Dosage: 500 MG/M2 (STARTED AT DAY -61 AND -33)
  5. ANTI-THYMOCYTE GLOBULIN (RABBIT) NOS [Suspect]
     Active Substance: LAPINE T-LYMPHOCYTE IMMUNE GLOBULIN
     Indication: Sickle cell disease
     Dosage: 1.5 MG/KG, QD (AT DAY -12 -11 AND -10)
  6. BUSULFAN [Suspect]
     Active Substance: BUSULFAN
     Indication: Sickle cell disease
     Dosage: 110 MG/M2  ON DAYS-8
  7. BUSULFAN [Suspect]
     Active Substance: BUSULFAN
     Dosage: DOSE ADJUSMENTS ON DAYS-6 TO -4 DAY
  8. CYCLOSPORINE [Suspect]
     Active Substance: CYCLOSPORINE
     Indication: Prophylaxis against graft versus host disease
     Dosage: 1.5 MG/KG, BID (FROM DAY +5)
  9. MYCOPHENOLATE MOFETIL [Suspect]
     Active Substance: MYCOPHENOLATE MOFETIL
     Indication: Prophylaxis against graft versus host disease
     Dosage: 15 MG/KG, TID (FROM DAY +5)
  10. MYCOPHENOLATE MOFETIL [Suspect]
     Active Substance: MYCOPHENOLATE MOFETIL
     Dosage: TAPERED AFTER DAY +70
  11. PENICILLIN [Concomitant]
     Active Substance: PENICILLIN
     Indication: Supportive care
     Dosage: STARTED WITH THE INITIATION OF PTIS
  12. VALACYCLOVIR HYDROCHLORIDE [Concomitant]
     Active Substance: VALACYCLOVIR HYDROCHLORIDE
     Indication: Supportive care
     Dosage: STARTED WITH THE INITIATION OF PTIS
  13. SULFAMETHOXAZOLE\TRIMETHOPRIM [Concomitant]
     Active Substance: SULFAMETHOXAZOLE\TRIMETHOPRIM
     Indication: Supportive care
     Dosage: STARTED WITH THE INITIATION OF PTIS
  14. FLUCONAZOLE [Concomitant]
     Active Substance: FLUCONAZOLE
     Indication: Supportive care
     Dosage: STARTED WITH THE INITIATION OF PTIS
  15. URSODIOL [Concomitant]
     Active Substance: URSODIOL
     Indication: Hepatic iron overload
  16. URSODIOL [Concomitant]
     Active Substance: URSODIOL
     Indication: Hepatic iron overload
  17. URSODIOL [Concomitant]
     Active Substance: URSODIOL
     Indication: Prophylaxis
  18. URSODIOL [Concomitant]
     Active Substance: URSODIOL
     Indication: Prophylaxis
  19. HEPARIN [Concomitant]
     Active Substance: HEPARIN SODIUM
     Indication: Prophylaxis
     Dosage: LOW DOSE
  20. LEVETIRACETAM [Concomitant]
     Active Substance: LEVETIRACETAM
     Indication: Seizure prophylaxis
     Dosage: UNK

REACTIONS (6)
  - Engraftment syndrome [Unknown]
  - Pneumonia [Unknown]
  - Mucosal inflammation [Unknown]
  - Ear infection [Unknown]
  - COVID-19 [Unknown]
  - Off label use [Unknown]
